FAERS Safety Report 4952465-4 (Version None)
Quarter: 2006Q1

REPORT INFORMATION
  Report Type: 
  Country: None (occurrence: None)
  Receive Date: 20060323
  Receipt Date: 20060314
  Transmission Date: 20060701
  Serious: Yes (Hospitalization)
  Sender: FDA-Public Use
  Company Number: US-BRISTOL-MYERS SQUIBB COMPANY-13315247

PATIENT
  Age: 76 Year
  Sex: Male

DRUGS (11)
  1. COUMADIN [Suspect]
     Indication: ATRIAL FIBRILLATION
     Dates: start: 20060125, end: 20060207
  2. COMBIVENT [Concomitant]
  3. DOCUSATE [Concomitant]
  4. FLUNISOLIDE [Concomitant]
  5. FUROSEMIDE [Concomitant]
  6. GLIPIZIDE [Concomitant]
  7. LOSARTAN POTASSIUM [Concomitant]
  8. NYSTATIN [Concomitant]
  9. PSYLLIUM [Concomitant]
  10. ZOCOR [Concomitant]
  11. SPIRONOLACTONE [Concomitant]

REACTIONS (2)
  - OEDEMA [None]
  - SCROTAL SWELLING [None]
